FAERS Safety Report 15091038 (Version 1)
Quarter: 2018Q2

REPORT INFORMATION
  Report Type: Spontaneous
  Country: US (occurrence: US)
  Receive Date: 20180629
  Receipt Date: 20180629
  Transmission Date: 20180711
  Serious: Yes (Other)
  Sender: FDA-Public Use
  Company Number: US-AMGEN-USASP2011014242

PATIENT
  Age: 81 Year
  Sex: Female

DRUGS (2)
  1. VITAMIN D                          /00107901/ [Concomitant]
     Active Substance: ERGOCALCIFEROL
  2. PROLIA [Suspect]
     Active Substance: DENOSUMAB
     Indication: OSTEOPOROSIS POSTMENOPAUSAL
     Dosage: 60 MG, Q6MO
     Dates: start: 20110121

REACTIONS (8)
  - Arthralgia [Not Recovered/Not Resolved]
  - Loss of personal independence in daily activities [Unknown]
  - Cystitis [Unknown]
  - Vertigo [Recovered/Resolved]
  - Haemoglobin decreased [Unknown]
  - Muscle spasms [Unknown]
  - Peripheral swelling [Unknown]
  - Back pain [Not Recovered/Not Resolved]

NARRATIVE: CASE EVENT DATE: 20110124
